FAERS Safety Report 4491385-9 (Version None)
Quarter: 2004Q4

REPORT INFORMATION
  Report Type: 
  Country: None (occurrence: None)
  Receive Date: 20041101
  Receipt Date: 20041101
  Transmission Date: 20050328
  Serious: Yes (Other)
  Sender: FDA-Public Use
  Company Number: None

PATIENT
  Sex: Female
  Weight: 107.5025 kg

DRUGS (1)
  1. FLONASE [Suspect]

REACTIONS (1)
  - DRUG INEFFECTIVE [None]
